FAERS Safety Report 24911244 (Version 1)
Quarter: 2025Q1

REPORT INFORMATION
  Report Type: Spontaneous
  Country: US (occurrence: None)
  Receive Date: 20250131
  Receipt Date: 20250131
  Transmission Date: 20250408
  Serious: Yes (Death)
  Sender: FDA-CTU
  Company Number: None

PATIENT
  Age: 29 Year
  Sex: Male

DRUGS (11)
  1. GENOTROPIN [Suspect]
     Active Substance: SOMATROPIN
     Indication: Hypothalamo-pituitary disorder
     Route: 058
     Dates: start: 20210901, end: 20250112
  2. ACYCLOVIR [Concomitant]
     Active Substance: ACYCLOVIR
  3. AMANTADINE SOL 50MG/5ML [Concomitant]
  4. AZITHROMYCIN [Concomitant]
     Active Substance: AZITHROMYCIN
  5. BENZONATATE CAP 100MG [Concomitant]
  6. DANTROLENE CAP 50MG [Concomitant]
  7. DEXAMETHASON TAB 1MG [Concomitant]
  8. DYSPORT INJ 300UNIT [Concomitant]
  9. DYSPORT INJ 500UNIT [Concomitant]
  10. ERYTHROMYCIN OIN 5MG/GM [Concomitant]
  11. GENOTROPIN INJ 5MG [Concomitant]

REACTIONS (1)
  - Death [None]

NARRATIVE: CASE EVENT DATE: 20250112
